FAERS Safety Report 10174023 (Version 1)
Quarter: 2014Q2

REPORT INFORMATION
  Report Type: Spontaneous
  Country: US (occurrence: None)
  Receive Date: 20140416
  Receipt Date: 20140416
  Transmission Date: 20141212
  Serious: Yes (Hospitalization)
  Sender: FDA-Public Use
  Company Number: 163-POMAL-13124982

PATIENT
  Age: 73 Year
  Sex: Female
  Weight: 72 kg

DRUGS (8)
  1. POMALYST [Suspect]
     Indication: PLASMA CELL MYELOMA
     Route: 048
     Dates: start: 20131003
  2. CORICIDIN HBP [Concomitant]
  3. VITAMIN B12 [Concomitant]
  4. LASIX (FUROSEMIDE) [Concomitant]
  5. RITALIN [Suspect]
  6. KLOR-CON (POTASSIUM CHLORIDE) [Concomitant]
  7. CALCIUM PLUS VITAMIN D (CALCIUM D3 ^STADA^) [Concomitant]
  8. ASPIRIN (ACETYLSALICYLIC ACID) [Concomitant]

REACTIONS (1)
  - Thrombosis [None]
